FAERS Safety Report 9791057 (Version 1)
Quarter: 2013Q4

REPORT INFORMATION
  Report Type: Spontaneous
  Country: US (occurrence: US)
  Receive Date: 20131231
  Receipt Date: 20131231
  Transmission Date: 20140711
  Serious: No
  Sender: FDA-Public Use
  Company Number: US-BIOGENIDEC-2013BI113072

PATIENT
  Age: 71 Year
  Sex: Female

DRUGS (14)
  1. TECFIDERA [Suspect]
     Indication: MULTIPLE SCLEROSIS
     Route: 048
     Dates: start: 201309
  2. TECFIDERA [Suspect]
     Indication: MULTIPLE SCLEROSIS
     Route: 048
     Dates: start: 201309
  3. ZOCOR [Concomitant]
  4. BACLOFEN [Concomitant]
  5. CYMBALTA [Concomitant]
  6. HCTZ [Concomitant]
  7. REQUIP [Concomitant]
  8. VALIUM [Concomitant]
  9. POTASSIUM CHLORIDE [Concomitant]
  10. CVS VITAMIN B12 [Concomitant]
  11. CRANBERRY [Concomitant]
  12. CVS VITAMIN D [Concomitant]
  13. BUMETANIDE [Concomitant]
  14. CVS VITAMIN C [Concomitant]

REACTIONS (2)
  - Paraesthesia [Unknown]
  - Flushing [Recovered/Resolved]
